FAERS Safety Report 15723455 (Version 1)
Quarter: 2018Q4

REPORT INFORMATION
  Report Type: Report from Study
  Country: None (occurrence: GB)
  Receive Date: 20181214
  Receipt Date: 20181214
  Transmission Date: 20190205
  Serious: Yes (Other)
  Sender: FDA-Public Use
  Company Number: GB-ABBVIE-18S-167-2588835-00

PATIENT
  Age: 68 Year
  Sex: Male

DRUGS (1)
  1. DUODOPA [Suspect]
     Active Substance: CARBIDOPA\LEVODOPA
     Indication: PARKINSON^S DISEASE
     Dosage: 100ML CASSETTE.?5MG/1ML 20MG/1ML?DAILY
     Route: 050

REACTIONS (10)
  - Abdominal distension [Unknown]
  - Stoma site infection [Unknown]
  - Mobility decreased [Unknown]
  - Gait inability [Unknown]
  - Tenderness [Unknown]
  - Stoma site oedema [Unknown]
  - Hypophagia [Unknown]
  - Pain [Unknown]
  - Fluid intake reduced [Unknown]
  - Diarrhoea [Unknown]

NARRATIVE: CASE EVENT DATE: 20181207
